FAERS Safety Report 6356541-3 (Version None)
Quarter: 2009Q3

REPORT INFORMATION
  Report Type: 
  Country: None (occurrence: None)
  Receive Date: 20090911
  Receipt Date: 20090911
  Transmission Date: 20100115
  Serious: Yes (Life-Threatening)
  Sender: FDA-Public Use
  Company Number: None

PATIENT
  Age: 52 Year
  Sex: Male
  Weight: 95.2554 kg

DRUGS (3)
  1. CHANTIX [Suspect]
     Indication: SMOKING CESSATION THERAPY
     Dosage: 1/2 MG MORNING/EVENING PO
     Route: 048
     Dates: start: 20070721, end: 20070820
  2. CHANTIX [Suspect]
     Indication: SMOKING CESSATION THERAPY
     Dosage: 1MG MORNING/EVENING PO
     Route: 048
     Dates: start: 20090424, end: 20090427
  3. CHANTIX [Concomitant]

REACTIONS (4)
  - ROAD TRAFFIC ACCIDENT [None]
  - SLEEP DISORDER [None]
  - SUICIDAL IDEATION [None]
  - THINKING ABNORMAL [None]
